FAERS Safety Report 8036302-X (Version None)
Quarter: 2012Q1

REPORT INFORMATION
  Report Type: 
  Country: None (occurrence: None)
  Receive Date: 20120111
  Receipt Date: 20120106
  Transmission Date: 20120608
  Serious: Yes (Other)
  Sender: FDA-Public Use
  Company Number: PHFR2010IE01489

PATIENT
  Sex: Male
  Weight: 72 kg

DRUGS (6)
  1. SINEMET [Concomitant]
     Indication: PARKINSON'S DISEASE
     Dosage: 450 MG/DAY
     Route: 048
  2. CLOZARIL [Suspect]
     Dosage: 25 MG, BID
     Route: 048
     Dates: start: 20100721
  3. CLOZARIL [Suspect]
     Dosage: 25 MG MANE AND 12.5 MG NOCTE
     Route: 048
     Dates: end: 20120105
  4. VALPROATE SODIUM [Concomitant]
     Indication: AFFECTIVE DISORDER
     Dosage: 1 G/DAY
     Route: 048
  5. CLOZARIL [Suspect]
     Indication: SCHIZOPHRENIA
     Dosage: 75 MG/DAY
     Route: 048
     Dates: start: 20091214
  6. CLOZARIL [Suspect]
     Dosage: 100 MG/DAY
     Route: 048
     Dates: start: 20100715

REACTIONS (6)
  - CYANOSIS [None]
  - CARDIOMYOPATHY [None]
  - PLATELET COUNT DECREASED [None]
  - VENTRICULAR HYPOKINESIA [None]
  - TACHYCARDIA [None]
  - HYPOTENSION [None]
